FAERS Safety Report 25106631 (Version 2)
Quarter: 2025Q2

REPORT INFORMATION
  Report Type: Spontaneous
  Country: JP (occurrence: JP)
  Receive Date: 20250321
  Receipt Date: 20250627
  Transmission Date: 20250716
  Serious: Yes (Other)
  Sender: ELI LILLY AND COMPANY
  Company Number: JP-ELI_LILLY_AND_COMPANY-JP202503013773

PATIENT
  Age: 45 Year
  Sex: Male
  Weight: 58.2 kg

DRUGS (9)
  1. TALTZ [Suspect]
     Active Substance: IXEKIZUMAB
     Indication: Psoriatic arthropathy
     Route: 058
     Dates: start: 20241008, end: 20241008
  2. TALTZ [Suspect]
     Active Substance: IXEKIZUMAB
     Route: 058
     Dates: start: 20241022
  3. TALTZ [Suspect]
     Active Substance: IXEKIZUMAB
     Route: 058
  4. RHEUMATREX [Concomitant]
     Active Substance: METHOTREXATE SODIUM
     Indication: Psoriatic arthropathy
     Dosage: 14 MG, WEEKLY (1/W)
     Route: 048
     Dates: start: 20180912
  5. PREDONINE [Concomitant]
     Active Substance: PREDNISOLONE
     Indication: Psoriatic arthropathy
     Dosage: 5 MG, DAILY
     Route: 048
     Dates: start: 20190307
  6. FOLIC ACID [Concomitant]
     Active Substance: FOLIC ACID
     Dosage: 5 MG, DAILY
     Route: 048
     Dates: start: 20180912
  7. AMLODIPINE BESYLATE\TELMISARTAN [Concomitant]
     Active Substance: AMLODIPINE BESYLATE\TELMISARTAN
     Indication: Hypertension
     Route: 048
     Dates: start: 20190821
  8. CANALIA [CANAGLIFLOZIN HEMIHYDRATE;TENELIGLIP [Concomitant]
     Indication: Diabetes mellitus
     Route: 048
     Dates: start: 20240416
  9. METGLUCO [Concomitant]
     Active Substance: METFORMIN HYDROCHLORIDE
     Indication: Diabetes mellitus
     Dosage: 500 MG, DAILY
     Route: 048
     Dates: start: 20240416

REACTIONS (2)
  - Infective corneal ulcer [Recovered/Resolved]
  - Nasopharyngitis [Unknown]

NARRATIVE: CASE EVENT DATE: 20241204
